FAERS Safety Report 22532789 (Version 1)
Quarter: 2023Q2

REPORT INFORMATION
  Report Type: Spontaneous
  Country: FR (occurrence: FR)
  Receive Date: 20230607
  Receipt Date: 20230607
  Transmission Date: 20230722
  Serious: Yes (Hospitalization)
  Sender: FDA-Public Use
  Company Number: None

PATIENT
  Age: 87 Year
  Sex: Male
  Weight: 54.4 kg

DRUGS (3)
  1. AMOXICILLIN\CLAVULANATE POTASSIUM [Suspect]
     Active Substance: AMOXICILLIN\CLAVULANATE POTASSIUM
     Indication: Psoas abscess
     Dosage: 3 G, QD CHILDREN (AMOXICI RATIO)
     Route: 065
     Dates: start: 20220131, end: 20220207
  2. METRONIDAZOLE [Suspect]
     Active Substance: METRONIDAZOLE
     Indication: Psoas abscess
     Dosage: 1 DOSAGE FORM, QD
     Route: 042
     Dates: start: 20220126, end: 20220131
  3. CEFOTAXIME [Suspect]
     Active Substance: CEFOTAXIME SODIUM
     Indication: Psoas abscess
     Dosage: 1 DOSAGE FORM,  (TOTAL, IM-IV)
     Route: 042
     Dates: start: 20220126, end: 20220131

REACTIONS (3)
  - Thrombocytopenia [Recovering/Resolving]
  - Neutropenia [Recovering/Resolving]
  - Anaemia [Recovering/Resolving]

NARRATIVE: CASE EVENT DATE: 20220207
